FAERS Safety Report 4656822-5 (Version None)
Quarter: 2005Q2

REPORT INFORMATION
  Report Type: 
  Country: None (occurrence: None)
  Receive Date: 20050505
  Receipt Date: 20050421
  Transmission Date: 20051028
  Serious: Yes (Hospitalization)
  Sender: FDA-Public Use
  Company Number: 2005AP02418

PATIENT
  Age: 29 Year
  Sex: Female

DRUGS (18)
  1. SEROQUEL [Suspect]
     Indication: BORDERLINE PERSONALITY DISORDER
     Dosage: 25 MG DAILY PO
     Route: 048
  2. SEROQUEL [Suspect]
     Indication: BORDERLINE PERSONALITY DISORDER
     Dosage: 150 MG DAILY PO
     Route: 048
     Dates: end: 20050316
  3. PAXIL [Suspect]
     Dosage: 20 MG DAILY PO
     Route: 048
     Dates: end: 20050319
  4. TASMOLIN [Suspect]
     Dates: start: 20050317
  5. CERCINE [Suspect]
     Dates: start: 20050316
  6. CERCINE [Suspect]
     Dates: start: 20050317
  7. CERCINE [Suspect]
     Dates: start: 20050317
  8. CERCINE [Suspect]
     Dosage: 5 MG DAILY IM
     Route: 030
     Dates: start: 20050318
  9. DEPAKENE [Concomitant]
  10. FLUNITRAZEPAM [Concomitant]
  11. DESYREL [Concomitant]
  12. ARTANE [Concomitant]
  13. FLUCAM [Concomitant]
  14. COLONEL [Concomitant]
  15. MAGLAX [Concomitant]
  16. BAKUMONDUOUTO [Concomitant]
  17. SOLANAX [Concomitant]
  18. CALONAL [Concomitant]

REACTIONS (14)
  - ANXIETY [None]
  - DELUSION [None]
  - DYSTONIA [None]
  - GAIT DISTURBANCE [None]
  - HALLUCINATION, AUDITORY [None]
  - HEADACHE [None]
  - LACERATION [None]
  - MUSCLE RIGIDITY [None]
  - OVERDOSE [None]
  - PANIC DISORDER [None]
  - PSYCHOTIC DISORDER [None]
  - SUICIDAL IDEATION [None]
  - SUICIDE ATTEMPT [None]
  - TREMOR [None]
